FAERS Safety Report 24943742 (Version 1)
Quarter: 2025Q1

REPORT INFORMATION
  Report Type: Spontaneous
  Country: US (occurrence: US)
  Receive Date: 20250207
  Receipt Date: 20250207
  Transmission Date: 20250408
  Serious: No
  Sender: ASCEND THERAPEUTICS US, LLC
  Company Number: US-Ascend Therapeutics US, LLC-2170747

PATIENT
  Sex: Female

DRUGS (2)
  1. ESTROGEL [Suspect]
     Active Substance: ESTRADIOL
     Indication: Product used for unknown indication
  2. ESTROGEL [Suspect]
     Active Substance: ESTRADIOL

REACTIONS (3)
  - Vulvovaginal burning sensation [Unknown]
  - Product dispensing error [Unknown]
  - Product prescribing error [Unknown]
